FAERS Safety Report 8359643-5 (Version None)
Quarter: 2012Q2

REPORT INFORMATION
  Report Type: 
  Country: None (occurrence: None)
  Receive Date: 20120515
  Receipt Date: 20120507
  Transmission Date: 20120825
  Serious: Yes (Other)
  Sender: FDA-Public Use
  Company Number: US-UCBSA-056951

PATIENT
  Age: 40 Year
  Sex: Male

DRUGS (2)
  1. HUMIRA [Suspect]
     Indication: CROHN'S DISEASE
     Dosage: 40 MG/0.8 ML
  2. CERTOLIZUMAB PEGOL [Suspect]
     Indication: CROHN'S DISEASE

REACTIONS (2)
  - DRUG INEFFECTIVE [None]
  - INTESTINAL PERFORATION [None]
